FAERS Safety Report 6588807-6 (Version None)
Quarter: 2010Q1

REPORT INFORMATION
  Report Type: 
  Country: None (occurrence: None)
  Receive Date: 20100218
  Receipt Date: 20100210
  Transmission Date: 20100710
  Serious: Yes (Hospitalization, Other)
  Sender: FDA-Public Use
  Company Number: TW-JNJFOC-20091101717

PATIENT
  Age: 75 Year
  Sex: Female

DRUGS (6)
  1. CRAVIT [Suspect]
     Indication: ENDOCARDITIS
     Route: 042
     Dates: start: 20090401, end: 20090517
  2. CEFAZOLIN [Suspect]
     Indication: ENDOCARDITIS
     Route: 065
     Dates: start: 20090418
  3. GENTAMICIN [Suspect]
     Indication: ENDOCARDITIS
     Route: 065
     Dates: start: 20090418
  4. PENICILIN G [Suspect]
     Indication: ENDOCARDITIS
     Route: 065
     Dates: start: 20090420
  5. AMPICILLIN [Suspect]
     Indication: ENDOCARDITIS
     Route: 065
     Dates: start: 20090421
  6. CEFTRIAXONE [Suspect]
     Indication: ENDOCARDITIS
     Route: 065
     Dates: start: 20090101

REACTIONS (4)
  - GASTRIC ULCER [None]
  - NEPHRITIS ALLERGIC [None]
  - PYREXIA [None]
  - RASH [None]
